FAERS Safety Report 8421587-8 (Version None)
Quarter: 2012Q2

REPORT INFORMATION
  Report Type: 
  Country: None (occurrence: None)
  Receive Date: 20120608
  Receipt Date: 20120531
  Transmission Date: 20120825
  Serious: Yes (Other)
  Sender: FDA-Public Use
  Company Number: CH-SANOFI-AVENTIS-2012SA039073

PATIENT
  Age: 35 Year
  Sex: Female

DRUGS (3)
  1. ASPIRIN [Suspect]
     Route: 065
     Dates: end: 20110519
  2. LANTUS [Suspect]
     Indication: TYPE 2 DIABETES MELLITUS
     Route: 065
     Dates: end: 20110519
  3. JANUMET [Suspect]
     Indication: DIABETES MELLITUS
     Dosage: DOSE: 50MH/1000MG 2 TABLETS/D
     Route: 065
     Dates: end: 20110519

REACTIONS (2)
  - ABORTION SPONTANEOUS [None]
  - MATERNAL EXPOSURE DURING PREGNANCY [None]
